FAERS Safety Report 9955199 (Version 1)
Quarter: 2014Q1

REPORT INFORMATION
  Report Type: Spontaneous
  Country: CA (occurrence: CA)
  Receive Date: 20140304
  Receipt Date: 20140304
  Transmission Date: 20141002
  Serious: Yes (Other)
  Sender: FDA-Public Use
  Company Number: CA-ELI_LILLY_AND_COMPANY-CA201402008617

PATIENT
  Age: 66 Year
  Sex: Female

DRUGS (2)
  1. PROZAC [Suspect]
     Indication: ANTIDEPRESSANT THERAPY
     Dosage: 40 MG, QD
     Route: 048
  2. TAMOXIFEN [Interacting]
     Indication: BREAST CANCER METASTATIC
     Dosage: 20 MG, QD
     Route: 048
     Dates: start: 20131009, end: 20140209

REACTIONS (3)
  - Breast cancer [Unknown]
  - Bone disorder [Unknown]
  - Inhibitory drug interaction [Unknown]
